FAERS Safety Report 8176780-9 (Version None)
Quarter: 2012Q1

REPORT INFORMATION
  Report Type: 
  Country: None (occurrence: None)
  Receive Date: 20120301
  Receipt Date: 20120220
  Transmission Date: 20120608
  Serious: Yes (Other)
  Sender: FDA-Public Use
  Company Number: FR-CELGENEUS-056-21880-11101742

PATIENT
  Sex: Male
  Weight: 89 kg

DRUGS (41)
  1. PREDNISOLONE [Suspect]
     Indication: B-CELL LYMPHOMA
     Dosage: 400 MILLIGRAM
     Route: 048
     Dates: start: 20110201
  2. REVLIMID [Suspect]
     Dosage: 25 MILLIGRAM
     Route: 048
     Dates: start: 20110517, end: 20110530
  3. METHYLPREDNISOLONE [Suspect]
     Indication: B-CELL LYMPHOMA
     Route: 041
     Dates: start: 20110201, end: 20110517
  4. RITUXIMAB [Suspect]
     Dosage: 750 MILLIGRAM
     Route: 041
     Dates: start: 20110607, end: 20110607
  5. CYCLOPHOSPHAMIDE [Suspect]
     Indication: B-CELL LYMPHOMA
     Dosage: 1500 MILLIGRAM
     Route: 041
     Dates: start: 20110201, end: 20110201
  6. CYCLOPHOSPHAMIDE [Suspect]
     Dosage: 1500 MILLIGRAM
     Route: 041
     Dates: start: 20110222, end: 20110222
  7. DOXORUBICIN HCL [Suspect]
     Dosage: 100 MILLIGRAM
     Route: 041
     Dates: start: 20110222, end: 20110222
  8. DOXORUBICIN HCL [Suspect]
     Dosage: 100 MILLIGRAM
     Route: 041
     Dates: start: 20110315, end: 20110315
  9. NEULASTA [Concomitant]
     Dosage: 6 MILLIGRAM
     Route: 065
     Dates: start: 20110225, end: 20110225
  10. NEULASTA [Concomitant]
     Route: 065
     Dates: start: 20110520, end: 20110520
  11. VINCRISTINE [Suspect]
     Dosage: 2 MILLIGRAM
     Route: 041
     Dates: start: 20110405, end: 20110405
  12. DOXORUBICIN HCL [Suspect]
     Dosage: 100 MILLIGRAM
     Route: 041
     Dates: start: 20110405, end: 20110405
  13. NEULASTA [Concomitant]
     Route: 065
     Dates: start: 20110408, end: 20110408
  14. SERETID [Concomitant]
     Indication: ASTHMA
     Route: 065
     Dates: start: 20110520, end: 20110809
  15. RITUXIMAB [Suspect]
     Indication: B-CELL LYMPHOMA
     Dosage: 750 MILLIGRAM
     Route: 041
     Dates: start: 20110201, end: 20110201
  16. RITUXIMAB [Suspect]
     Dosage: 750 MILLIGRAM
     Route: 041
     Dates: start: 20110426, end: 20110426
  17. RITUXIMAB [Suspect]
     Route: 041
     Dates: end: 20110901
  18. VINCRISTINE [Suspect]
     Indication: B-CELL LYMPHOMA
     Dosage: 2 MILLIGRAM
     Route: 041
     Dates: start: 20110201, end: 20110201
  19. VINCRISTINE [Suspect]
     Dosage: 2 MILLIGRAM
     Route: 041
     Dates: start: 20110222, end: 20110222
  20. CYCLOPHOSPHAMIDE [Suspect]
     Dosage: 1500 MILLIGRAM
     Route: 041
     Dates: start: 20110426, end: 20110426
  21. NEXIUM [Concomitant]
     Dosage: 40 MILLIGRAM
     Route: 065
     Dates: start: 20110202, end: 20110809
  22. RITUXIMAB [Suspect]
     Dosage: 750 MILLIGRAM
     Route: 041
     Dates: start: 20110222, end: 20110222
  23. VINCRISTINE [Suspect]
     Dosage: 2 MILLIGRAM
     Route: 041
     Dates: start: 20110517, end: 20110517
  24. CYCLOPHOSPHAMIDE [Suspect]
     Dosage: 1500 MILLIGRAM
     Route: 041
     Dates: start: 20110517, end: 20110517
  25. DOXORUBICIN HCL [Suspect]
     Dosage: 100 MILLIGRAM
     Route: 041
     Dates: start: 20110517, end: 20110517
  26. NEULASTA [Concomitant]
     Route: 065
     Dates: start: 20110502, end: 20110502
  27. RITUXIMAB [Suspect]
     Dosage: 750 MILLIGRAM
     Route: 041
     Dates: start: 20110405, end: 20110405
  28. RITUXIMAB [Suspect]
     Dosage: 750 MILLIGRAM
     Route: 041
     Dates: start: 20110629, end: 20110629
  29. VINCRISTINE [Suspect]
     Dosage: 2 MILLIGRAM
     Route: 041
     Dates: start: 20110315, end: 20110315
  30. DOXORUBICIN HCL [Suspect]
     Indication: B-CELL LYMPHOMA
     Dosage: 100 MILLIGRAM
     Route: 041
     Dates: start: 20110201, end: 20110201
  31. DOXORUBICIN HCL [Suspect]
     Dosage: 100 MILLIGRAM
     Route: 041
     Dates: start: 20110426, end: 20110426
  32. VALACYCLOVIR HYDROCHLORIDE [Concomitant]
     Dosage: 1000 MILLIGRAM
     Route: 065
     Dates: start: 20110131, end: 20110811
  33. CYCLOPHOSPHAMIDE [Suspect]
     Dosage: 1500 MILLIGRAM
     Route: 041
     Dates: start: 20110315, end: 20110315
  34. NEULASTA [Concomitant]
     Dosage: 6 MILLIGRAM
     Route: 065
     Dates: start: 20110204, end: 20110204
  35. NEULASTA [Concomitant]
     Dosage: 6 MILLIGRAM
     Route: 065
     Dates: start: 20110318, end: 20110318
  36. REVLIMID [Suspect]
     Indication: B-CELL LYMPHOMA
     Dosage: 25 MILLIGRAM
     Route: 048
     Dates: start: 20110201, end: 20110214
  37. RITUXIMAB [Suspect]
     Dosage: 750 MILLIGRAM
     Route: 041
     Dates: start: 20110315, end: 20110315
  38. RITUXIMAB [Suspect]
     Dosage: 750 MILLIGRAM
     Route: 041
     Dates: start: 20110517, end: 20110517
  39. VINCRISTINE [Suspect]
     Dosage: 2 MILLIGRAM
     Route: 041
     Dates: start: 20110426, end: 20110426
  40. PREDNISOLONE [Suspect]
     Route: 048
     Dates: start: 20110517
  41. CYCLOPHOSPHAMIDE [Suspect]
     Dosage: 1500 MILLIGRAM
     Route: 041
     Dates: start: 20110405, end: 20110405

REACTIONS (1)
  - TONSIL CANCER [None]
